FAERS Safety Report 5369153-5 (Version None)
Quarter: 2007Q2

REPORT INFORMATION
  Report Type: 
  Country: None (occurrence: None)
  Receive Date: 20070625
  Receipt Date: 20070117
  Transmission Date: 20071010
  Serious: No
  Sender: FDA-Public Use
  Company Number: US-ASTRAZENECA-2006UW28433

PATIENT
  Age: 82 Year
  Sex: Male
  Weight: 68.6 kg

DRUGS (4)
  1. CRESTOR [Suspect]
     Indication: BLOOD CHOLESTEROL INCREASED
     Route: 048
     Dates: start: 20060601, end: 20060901
  2. ASPIRIN [Concomitant]
     Indication: CORONARY ARTERY DISEASE
  3. COENZYME Q10 [Concomitant]
     Indication: MYALGIA
  4. HYPERTENSION MEDICATION [Concomitant]

REACTIONS (2)
  - ALOPECIA [None]
  - MYALGIA [None]
